FAERS Safety Report 6443858-7 (Version None)
Quarter: 2009Q4

REPORT INFORMATION
  Report Type: 
  Country: None (occurrence: None)
  Receive Date: 20091113
  Receipt Date: 20091030
  Transmission Date: 20100525
  Serious: Yes (Death)
  Sender: FDA-Public Use
  Company Number: BVT-000360

PATIENT
  Age: 62 Year
  Sex: Female

DRUGS (2)
  1. KINERET [Suspect]
     Indication: URTICARIA THERMAL
     Dosage: (100 MG SUBCUTANEOUS)
     Route: 058
  2. KINERET [Suspect]
     Indication: AMYOTROPHIC LATERAL SCLEROSIS
     Dosage: (300 MG INTRAVENOUS (NOT OTHERWISE SPECIFIED)) ( TO NOT CONTINUING)
     Route: 042

REACTIONS (8)
  - AMYOTROPHIC LATERAL SCLEROSIS [None]
  - BLOOD ALKALINE PHOSPHATASE [None]
  - DISEASE COMPLICATION [None]
  - DISEASE PROGRESSION [None]
  - DRUG EFFECT DECREASED [None]
  - INJECTION SITE REACTION [None]
  - SKIN LESION [None]
  - YAWNING [None]
